FAERS Safety Report 9782671 (Version 1)
Quarter: 2013Q4

REPORT INFORMATION
  Report Type: Spontaneous
  Country: DE (occurrence: DE)
  Receive Date: 20131226
  Receipt Date: 20131226
  Transmission Date: 20140711
  Serious: Yes (Hospitalization)
  Sender: FDA-Public Use
  Company Number: PHHY2013DE151687

PATIENT
  Sex: 0

DRUGS (1)
  1. LEPONEX [Suspect]
     Dosage: UNK
     Route: 048

REACTIONS (1)
  - Accident [Not Recovered/Not Resolved]
